FAERS Safety Report 6796240-7 (Version None)
Quarter: 2010Q2

REPORT INFORMATION
  Report Type: 
  Country: None (occurrence: None)
  Receive Date: 20100624
  Receipt Date: 20100624
  Transmission Date: 20101027
  Serious: Yes (Hospitalization)
  Sender: FDA-Public Use
  Company Number: None

PATIENT
  Age: 61 Year
  Sex: Female
  Weight: 69.1 kg

DRUGS (1)
  1. CISPLATIN [Suspect]
     Indication: NEOPLASM
     Dosage: 150 MG ONCE IV
     Route: 042
     Dates: start: 20100611, end: 20100611

REACTIONS (1)
  - RENAL FAILURE ACUTE [None]
